FAERS Safety Report 6900912-0 (Version None)
Quarter: 2010Q3

REPORT INFORMATION
  Report Type: 
  Country: None (occurrence: None)
  Receive Date: 20100803
  Receipt Date: 20100727
  Transmission Date: 20110219
  Serious: Yes (Other)
  Sender: FDA-Public Use
  Company Number: A0873320A

PATIENT
  Age: 23 Year
  Sex: Female

DRUGS (8)
  1. COMBIVIR [Suspect]
     Indication: HIV INFECTION
     Route: 048
     Dates: start: 20030327
  2. VIRAMUNE [Suspect]
     Indication: HIV INFECTION
     Route: 048
     Dates: start: 20030327
  3. METRONIDAZOLE [Concomitant]
  4. AMOXICILLIN TRIHYDRATE [Concomitant]
  5. AZITHROMYCIN [Concomitant]
  6. BACTRIM [Concomitant]
  7. CEPHALEXIN [Concomitant]
  8. IRON PREPARATION [Concomitant]

REACTIONS (2)
  - DRUG EXPOSURE DURING PREGNANCY [None]
  - STILLBIRTH [None]
